FAERS Safety Report 7548050-0 (Version None)
Quarter: 2011Q2

REPORT INFORMATION
  Report Type: 
  Country: None (occurrence: None)
  Receive Date: 20110608
  Receipt Date: 20110524
  Transmission Date: 20111010
  Serious: Yes (Life-Threatening)
  Sender: FDA-Public Use
  Company Number: AUR-APL-2011-02267

PATIENT
  Age: 80 Year
  Sex: Female

DRUGS (13)
  1. COLECALCIFEROL [Concomitant]
  2. BISOPROLOL FUMARATE [Concomitant]
  3. ALENDRONATE SODIUM [Suspect]
     Dosage: 70MG-WEEKLY
     Dates: start: 20101001
  4. AMLODIPINE [Concomitant]
  5. LEVOTHYROXINE SODIUM [Concomitant]
  6. BROMAZEPAM AL 1.5MG [Concomitant]
  7. RAMIPRIL [Concomitant]
  8. VALPROATE SODIUM 500MG [Concomitant]
  9. DOXEPINE 50MG [Concomitant]
  10. HYDROCHLOROTHIAZIDE/OLMESARTAN MEDOXOMIL [Concomitant]
  11. MARCUMAR [Suspect]
     Indication: ATRIAL FIBRILLATION
     Dates: start: 20080401
  12. ISOSORBIDE DINITRATE [Concomitant]
  13. FUROSEMIDE 10MG [Concomitant]

REACTIONS (4)
  - DRUG EFFECT INCREASED [None]
  - DRUG INTERACTION [None]
  - INTERNATIONAL NORMALISED RATIO INCREASED [None]
  - PROTHROMBIN TIME PROLONGED [None]
